FAERS Safety Report 4473131-8 (Version None)
Quarter: 2004Q4

REPORT INFORMATION
  Report Type: 
  Country: None (occurrence: None)
  Receive Date: 20041008
  Receipt Date: 20040930
  Transmission Date: 20050328
  Serious: Yes (Hospitalization)
  Sender: FDA-Public Use
  Company Number: MAG-2004-0000303

PATIENT
  Age: 32 Year
  Sex: Male

DRUGS (1)
  1. POVIDONE IODINE [Suspect]
     Indication: LOCAL ANTIBACTERIAL THERAPY
     Dosage: 1 APPLIC, DAILY, TOPICAL
     Route: 061
     Dates: start: 20040802, end: 20040802

REACTIONS (4)
  - EPIDERMAL NECROSIS [None]
  - EPIDERMOLYSIS [None]
  - HAEMORRHAGE SUBCUTANEOUS [None]
  - THERMAL BURN [None]
